FAERS Safety Report 7282927-9 (Version None)
Quarter: 2011Q1

REPORT INFORMATION
  Report Type: 
  Country: None (occurrence: None)
  Receive Date: 20110209
  Receipt Date: 20100909
  Transmission Date: 20110831
  Serious: Yes (Hospitalization)
  Sender: FDA-Public Use
  Company Number: US-BAYER-201017213NA

PATIENT
  Sex: Female
  Weight: 65.76 kg

DRUGS (12)
  1. MILK OF MAGNESIA TAB [Concomitant]
     Indication: CONSTIPATION
     Dosage: 30 ML
     Route: 048
  2. NORMAL SALINE [Concomitant]
  3. SENNA [Concomitant]
     Indication: CONSTIPATION
     Dosage: 1-2 TABLETS
     Route: 048
  4. OCELLA [Suspect]
     Indication: PRODUCT USED FOR UNKNOWN INDICATION
     Route: 048
     Dates: start: 20040301, end: 20040701
  5. ANZEMET [Concomitant]
     Route: 042
  6. PERCOCET [Concomitant]
     Indication: PAIN
     Dosage: 1-2 TABLETS Q 4 HOURS
     Route: 048
  7. YAZ [Suspect]
     Indication: PRODUCT USED FOR UNKNOWN INDICATION
     Route: 048
     Dates: start: 20040301, end: 20040701
  8. YASMIN [Suspect]
     Indication: PRODUCT USED FOR UNKNOWN INDICATION
     Dosage: UNK UNK, QD
     Route: 048
     Dates: start: 20040201, end: 20040719
  9. DILAUDID [Concomitant]
     Route: 042
  10. ATIVAN [Concomitant]
     Route: 042
  11. BICARBONAT [Concomitant]
     Indication: PROPHYLAXIS
  12. MACROBID [Concomitant]
     Dosage: UNK
     Dates: start: 20040101

REACTIONS (7)
  - ABDOMINAL PAIN UPPER [None]
  - PULMONARY EMBOLISM [None]
  - CHEST PAIN [None]
  - BACK PAIN [None]
  - CHEST DISCOMFORT [None]
  - ESCHERICHIA URINARY TRACT INFECTION [None]
  - CONSTIPATION [None]
